FAERS Safety Report 23566446 (Version 1)
Quarter: 2024Q1

REPORT INFORMATION
  Report Type: Spontaneous
  Country: US (occurrence: US)
  Receive Date: 20240226
  Receipt Date: 20240226
  Transmission Date: 20240409
  Serious: No
  Sender: FDA-Public Use
  Company Number: US-AMNEAL PHARMACEUTICALS-2023-AMRX-00199

PATIENT
  Sex: Male

DRUGS (1)
  1. RYTARY [Suspect]
     Active Substance: CARBIDOPA\LEVODOPA
     Indication: Product used for unknown indication
     Dosage: 23.75/95 MG AND 61.25/245 MG ONE CAPSULE EACH IN MORNING AND 61.25/245 MG ONE CAPSULE AT NIGHT
     Route: 048
     Dates: start: 2022

REACTIONS (1)
  - Aggression [Unknown]
